FAERS Safety Report 5186481-7 (Version None)
Quarter: 2006Q4

REPORT INFORMATION
  Report Type: 
  Country: None (occurrence: None)
  Receive Date: 20061220
  Receipt Date: 20061219
  Transmission Date: 20070319
  Serious: Yes (Death)
  Sender: FDA-Public Use
  Company Number: JP-BOEHRINGER INGELHEIM PHARMACEUTICALS, INC.-2006-BP-14738NB

PATIENT
  Age: 56 Year
  Sex: Male

DRUGS (1)
  1. BI-SIFROL TABLETS [Suspect]
     Indication: NEURODEGENERATIVE DISORDER
     Route: 048

REACTIONS (3)
  - DYSPHAGIA [None]
  - DYSPNOEA [None]
  - INJURY ASPHYXIATION [None]
